FAERS Safety Report 4642288-8 (Version None)
Quarter: 2005Q2

REPORT INFORMATION
  Report Type: 
  Country: None (occurrence: None)
  Receive Date: 20050421
  Receipt Date: 20050421
  Transmission Date: 20051028
  Serious: No
  Sender: FDA-Public Use
  Company Number: None

PATIENT
  Sex: Male
  Weight: 83.9 kg

DRUGS (11)
  1. TEMOZOLOMIDE [Suspect]
     Indication: GLIOBLASTOMA MULTIFORME
     Dosage: SEE IMAGE
     Dates: start: 20050404
  2. IRINOTECAN HCL [Suspect]
     Dosage: FOR 1 YEAR OR UNTIL PROGRESSION OR UNACCEPTABLE TOXICITY, BEGINNING 4-6 WEEKS AFTER COMPLETION OF RA
  3. RADIATION THERAPY [Suspect]
  4. COLACE [Concomitant]
  5. DECADRON [Concomitant]
  6. DILATIN [Concomitant]
  7. HYDROCHLOROTHIAZIDE [Concomitant]
  8. LISINOPRIL [Concomitant]
  9. MOM [Concomitant]
  10. PERCOCET [Concomitant]
  11. PROTONIX [Concomitant]

REACTIONS (4)
  - BACTERAEMIA [None]
  - LOSS OF CONSCIOUSNESS [None]
  - MENTAL STATUS CHANGES [None]
  - SOMNOLENCE [None]
